FAERS Safety Report 6310934-9 (Version None)
Quarter: 2009Q3

REPORT INFORMATION
  Report Type: 
  Country: None (occurrence: None)
  Receive Date: 20090816
  Receipt Date: 20090805
  Transmission Date: 20100115
  Serious: Yes (Death, Other)
  Sender: FDA-Public Use
  Company Number: GB-JNJFOC-20090802689

PATIENT

DRUGS (2)
  1. INFLIXIMAB [Suspect]
     Indication: GRAFT VERSUS HOST DISEASE
     Dosage: RECEIVED ON DAYS 1, 8, 15 AND 22
     Route: 042
  2. DACLIZUMAB [Suspect]
     Indication: GRAFT VERSUS HOST DISEASE
     Dosage: RECEIVED ON DAYS 1, 4, 8, 15 AND 22
     Route: 042

REACTIONS (4)
  - DISEASE PROGRESSION [None]
  - DRUG INEFFECTIVE FOR UNAPPROVED INDICATION [None]
  - GASTROINTESTINAL HAEMORRHAGE [None]
  - GRAFT VERSUS HOST DISEASE [None]
